FAERS Safety Report 18931690 (Version 1)
Quarter: 2021Q1

REPORT INFORMATION
  Report Type: Spontaneous
  Country: US (occurrence: US)
  Receive Date: 20210223
  Receipt Date: 20210223
  Transmission Date: 20210420
  Serious: No
  Sender: FDA-Public Use
  Company Number: US-IGSA-BIG0010783

PATIENT
  Age: 78 Year
  Sex: Female
  Weight: 75 kg

DRUGS (16)
  1. FUROSEMIDE. [Concomitant]
     Active Substance: FUROSEMIDE
  2. ATORVASTATIN [Concomitant]
     Active Substance: ATORVASTATIN
  3. ANORO [Concomitant]
     Active Substance: UMECLIDINIUM BROMIDE\VILANTEROL TRIFENATATE
  4. VITAMIN D                          /00107901/ [Concomitant]
     Active Substance: ERGOCALCIFEROL
  5. CARVEDILOL. [Concomitant]
     Active Substance: CARVEDILOL
  6. CENTRUM SILVER                     /02363801/ [Concomitant]
     Active Substance: MINERALS\VITAMINS
  7. DILTIAZEM. [Concomitant]
     Active Substance: DILTIAZEM
  8. LEVOCETIRIZINE [Concomitant]
     Active Substance: LEVOCETIRIZINE
  9. PROTOPIC [Concomitant]
     Active Substance: TACROLIMUS
  10. PROLASTIN?C LIQUID [Suspect]
     Active Substance: .ALPHA.1-PROTEINASE INHIBITOR HUMAN
     Indication: ALPHA-1 ANTITRYPSIN DEFICIENCY
     Dosage: 4500 MILLIGRAM, Q.WK.
     Route: 042
     Dates: start: 202007
  11. OMEPRAZOLE. [Concomitant]
     Active Substance: OMEPRAZOLE
  12. COLCHICINE. [Concomitant]
     Active Substance: COLCHICINE
  13. PROLASTIN?C LIQUID [Suspect]
     Active Substance: .ALPHA.1-PROTEINASE INHIBITOR HUMAN
     Dosage: 4500 MILLIGRAM, Q.WK.
     Dates: start: 202007
  14. ALBUTEROL                          /00139501/ [Concomitant]
     Active Substance: ALBUTEROL
  15. RESTASIS [Concomitant]
     Active Substance: CYCLOSPORINE
  16. ELIQUIS [Concomitant]
     Active Substance: APIXABAN

REACTIONS (4)
  - Blood pressure decreased [Recovered/Resolved]
  - Asthenia [Not Recovered/Not Resolved]
  - Headache [Not Recovered/Not Resolved]
  - Dizziness [Recovered/Resolved]

NARRATIVE: CASE EVENT DATE: 202007
